FAERS Safety Report 5152479-8 (Version None)
Quarter: 2006Q4

REPORT INFORMATION
  Report Type: 
  Country: None (occurrence: None)
  Receive Date: 20061116
  Receipt Date: 20061002
  Transmission Date: 20070319
  Serious: Yes (Death, Hospitalization)
  Sender: FDA-Public Use
  Company Number: US-ELI_LILLY_AND_COMPANY-US200610000171

PATIENT
  Age: 54 Year
  Sex: Male
  Weight: 104.31 kg

DRUGS (2)
  1. SYMBYAX [Suspect]
     Route: 048
  2. ZYPREXA [Suspect]
     Indication: SCHIZOPHRENIA, PARANOID TYPE
     Dosage: UNK, UNK
     Route: 048
     Dates: start: 19991112

REACTIONS (4)
  - ACUTE MYOCARDIAL INFARCTION [None]
  - DIABETES MELLITUS NON-INSULIN-DEPENDENT [None]
  - HYPERTENSION [None]
  - TACHYCARDIA [None]
